FAERS Safety Report 9900687 (Version 1)
Quarter: 2014Q1

REPORT INFORMATION
  Report Type: Report from Study
  Country: US (occurrence: US)
  Receive Date: 20140217
  Receipt Date: 20140217
  Transmission Date: 20141002
  Serious: Yes (Other)
  Sender: FDA-Public Use
  Company Number: US-ROCHE-1345836

PATIENT
  Sex: Male

DRUGS (6)
  1. CELLCEPT [Suspect]
     Indication: SYSTEMIC LUPUS ERYTHEMATOSUS
     Dosage: 2 TABLETS IN THE MORNING, 2 TABLETS IN THE EVENING
     Route: 065
  2. KEPPRA [Concomitant]
     Indication: CONVULSION
  3. HYDROXYCHLOROQUINE [Concomitant]
     Route: 065
  4. LEVETIRACETAM [Concomitant]
     Route: 048
  5. PREDNISONE [Concomitant]
  6. SIMVASTATIN [Concomitant]

REACTIONS (9)
  - Memory impairment [Unknown]
  - Convulsion [Unknown]
  - Joint lock [Unknown]
  - Alopecia [Unknown]
  - Eye disorder [Unknown]
  - Renal disorder [Unknown]
  - Bone disorder [Unknown]
  - Arthropathy [Unknown]
  - Underdose [Unknown]
